FAERS Safety Report 4581930-7 (Version None)
Quarter: 2005Q1

REPORT INFORMATION
  Report Type: 
  Country: None (occurrence: None)
  Receive Date: 20050214
  Receipt Date: 20040407
  Transmission Date: 20050727
  Serious: No
  Sender: FDA-Public Use
  Company Number: US-GLAXOSMITHKLINE-A0506246A

PATIENT
  Sex: Female

DRUGS (2)
  1. LAMICTAL [Suspect]
     Indication: BIPOLAR DISORDER
     Dosage: 25MG PER DAY
     Route: 048
  2. PAXIL [Suspect]
     Dosage: 25MG PER DAY
     Route: 048
     Dates: start: 20030801

REACTIONS (9)
  - DIPLOPIA [None]
  - FATIGUE [None]
  - HEADACHE [None]
  - HEART RATE INCREASED [None]
  - LYMPHADENOPATHY [None]
  - PYREXIA [None]
  - RASH [None]
  - STOMATITIS [None]
  - SWELLING FACE [None]
